FAERS Safety Report 8829754 (Version 1)
Quarter: 2012Q4

REPORT INFORMATION
  Report Type: 
  Country: US (occurrence: US)
  Receive Date: 20121008
  Receipt Date: 20121008
  Transmission Date: 20130627
  Serious: Yes (Death)
  Sender: FDA-Public Use
  Company Number: US-ROCHE-1130984

PATIENT
  Sex: Female

DRUGS (6)
  1. RITUXAN [Suspect]
     Indication: SJOGREN^S SYNDROME
     Route: 065
  2. RITUXAN [Suspect]
     Indication: MOTOR NEURONE DISEASE
     Route: 065
     Dates: start: 20041028
  3. RITUXAN [Suspect]
     Indication: OFF LABEL USE
     Route: 065
     Dates: start: 20041013
  4. RITUXAN [Suspect]
     Route: 065
     Dates: start: 20041111
  5. RITUXAN [Suspect]
     Route: 065
     Dates: start: 20041124
  6. PREDNISONE [Concomitant]

REACTIONS (1)
  - Death [Fatal]
